FAERS Safety Report 4523723-2 (Version None)
Quarter: 2004Q4

REPORT INFORMATION
  Report Type: 
  Country: None (occurrence: None)
  Receive Date: 20041101
  Receipt Date: 20040120
  Transmission Date: 20050328
  Serious: Yes (Hospitalization, Other)
  Sender: FDA-Public Use
  Company Number: HQWYE505821JAN04

PATIENT
  Age: 59 Year
  Sex: Female
  Weight: 122.58 kg

DRUGS (1)
  1. PREMARIN [Suspect]
     Indication: HOT FLUSH
     Dosage: 0.625MG DAILY, ORAL
     Route: 048
     Dates: start: 19900101, end: 20031223

REACTIONS (1)
  - DEEP VEIN THROMBOSIS [None]
